FAERS Safety Report 14106648 (Version 1)
Quarter: 2017Q4

REPORT INFORMATION
  Report Type: Spontaneous
  Country: CN (occurrence: CN)
  Receive Date: 20171019
  Receipt Date: 20171019
  Transmission Date: 20180321
  Serious: Yes (Hospitalization)
  Sender: FDA-Public Use
  Company Number: CN-JNJFOC-20171008646

PATIENT
  Age: 3 Day
  Sex: Female
  Weight: .71 kg

DRUGS (2)
  1. MOTRIN [Suspect]
     Active Substance: IBUPROFEN
     Indication: PATENT DUCTUS ARTERIOSUS REPAIR
     Route: 045
     Dates: start: 20170808, end: 20170814
  2. MOTRIN [Suspect]
     Active Substance: IBUPROFEN
     Route: 045

REACTIONS (5)
  - Hypovolaemic shock [Recovering/Resolving]
  - Product use in unapproved indication [Recovering/Resolving]
  - Off label use [Recovering/Resolving]
  - Upper gastrointestinal haemorrhage [Recovering/Resolving]
  - Incorrect route of drug administration [Recovering/Resolving]

NARRATIVE: CASE EVENT DATE: 20170808
